FAERS Safety Report 5969823-1 (Version None)
Quarter: 2008Q4

REPORT INFORMATION
  Report Type: 
  Country: None (occurrence: None)
  Receive Date: 20081126
  Receipt Date: 20080929
  Transmission Date: 20090506
  Serious: No
  Sender: FDA-Public Use
  Company Number: US-ABBOTT-08P-163-0478683-00

PATIENT
  Sex: Female

DRUGS (4)
  1. SIMCOR [Suspect]
     Indication: BLOOD CHOLESTEROL INCREASED
     Dosage: 500/20MG
     Route: 048
     Dates: start: 20080925, end: 20080926
  2. ESTROGENIC SUBSTANCE [Concomitant]
     Indication: DRUG USE FOR UNKNOWN INDICATION
     Route: 062
  3. CARISOPRODOL [Concomitant]
     Indication: MIGRAINE
     Route: 048
  4. FURINOL [Concomitant]
     Indication: MIGRAINE
     Route: 048

REACTIONS (4)
  - CARDIAC FLUTTER [None]
  - HOT FLUSH [None]
  - PRURITUS [None]
  - URTICARIA [None]
